FAERS Safety Report 9206721 (Version 2)
Quarter: 2013Q3

REPORT INFORMATION
  Report Type: Spontaneous
  Country: IT (occurrence: None)
  Receive Date: 20130401
  Receipt Date: 20130806
  Transmission Date: 20140515
  Serious: Yes (Other)
  Sender: FDA-Public Use
  Company Number: 1647061

PATIENT
  Age: 81 Year
  Sex: Male

DRUGS (1)
  1. OXALIPLATIN [Suspect]
     Indication: COLON CANCER
     Route: 042
     Dates: start: 20121205, end: 20130313

REACTIONS (5)
  - Malaise [None]
  - Erythema [None]
  - Dyspnoea [None]
  - Infusion related reaction [None]
  - Drug hypersensitivity [None]
